FAERS Safety Report 21321189 (Version 3)
Quarter: 2022Q3

REPORT INFORMATION
  Report Type: Report from Study
  Country: US (occurrence: US)
  Receive Date: 20220912
  Receipt Date: 20220915
  Transmission Date: 20221026
  Serious: No
  Sender: FDA-Public Use
  Company Number: US-NOVARTISTESTPH-NVSC2022US204490

PATIENT
  Sex: Male

DRUGS (1)
  1. ENTRESTO [Suspect]
     Active Substance: SACUBITRIL\VALSARTAN
     Indication: Product used for unknown indication
     Dosage: 0.5 DOSAGE FORM, QD (24/26 MG) ( DOSE IN THE EVENING)
     Route: 048

REACTIONS (5)
  - Weight decreased [Unknown]
  - Prescribed underdose [Unknown]
  - Hypotension [Unknown]
  - Off label use [Unknown]
  - Wrong technique in product usage process [Unknown]
